FAERS Safety Report 14700576 (Version 1)
Quarter: 2018Q1

REPORT INFORMATION
  Report Type: Report from Study
  Country: DK (occurrence: DK)
  Receive Date: 20180330
  Receipt Date: 20180330
  Transmission Date: 20180509
  Serious: Yes (Death)
  Sender: FDA-Public Use
  Company Number: DK-ASTRAZENECA-2018SE38367

PATIENT
  Age: 32 Year
  Sex: Female

DRUGS (11)
  1. PROMETHAZINE [Concomitant]
     Active Substance: PROMETHAZINE\PROMETHAZINE HYDROCHLORIDE
     Route: 065
  2. CODEINE [Concomitant]
     Active Substance: CODEINE
     Route: 065
  3. OXAZEPAM. [Concomitant]
     Active Substance: OXAZEPAM
     Route: 065
  4. NORDAZEPAM [Concomitant]
     Active Substance: NORDAZEPAM
     Route: 065
  5. OXYCODONE [Concomitant]
     Active Substance: OXYCODONE
     Route: 065
  6. QUETIAPINE FUMARATE. [Suspect]
     Active Substance: QUETIAPINE FUMARATE
     Indication: SEDATION
     Dosage: UNK
     Route: 048
  7. CITALOPRAM [Concomitant]
     Active Substance: CITALOPRAM HYDROBROMIDE
     Route: 065
  8. SERTRALINE [Concomitant]
     Active Substance: SERTRALINE HYDROCHLORIDE
     Route: 065
  9. PREGABALIN. [Concomitant]
     Active Substance: PREGABALIN
     Route: 065
  10. LEVETIRACETAM. [Concomitant]
     Active Substance: LEVETIRACETAM
     Route: 065
  11. TRAMADOL. [Concomitant]
     Active Substance: TRAMADOL
     Route: 065

REACTIONS (3)
  - Toxicity to various agents [Fatal]
  - Off label use [Unknown]
  - Product use in unapproved indication [Unknown]
